FAERS Safety Report 5530268-X (Version None)
Quarter: 2007Q4

REPORT INFORMATION
  Report Type: 
  Country: None (occurrence: None)
  Receive Date: 20071130
  Receipt Date: 20070608
  Transmission Date: 20080405
  Serious: No
  Sender: FDA-Public Use
  Company Number: A0654858A

PATIENT
  Age: 61 Year
  Sex: Female

DRUGS (11)
  1. AUGMENTIN XR [Suspect]
     Indication: SKIN INFECTION
     Dosage: 875MG TWICE PER DAY
     Route: 048
     Dates: start: 20070604, end: 20070608
  2. POTASSIUM CHLORIDE [Concomitant]
  3. THEO-DUR [Concomitant]
  4. LASIX [Concomitant]
  5. GLUCOTROL [Concomitant]
  6. KHELLIN [Concomitant]
  7. OXYCONTIN [Concomitant]
  8. ATIVAN [Concomitant]
  9. ALBUTEROL [Concomitant]
  10. LOTRISONE [Concomitant]
  11. UNKNOWN MEDICATION [Concomitant]

REACTIONS (5)
  - ABDOMINAL PAIN UPPER [None]
  - DIARRHOEA [None]
  - INFLUENZA [None]
  - MUSCULAR WEAKNESS [None]
  - PYREXIA [None]
